FAERS Safety Report 8065349-2 (Version None)
Quarter: 2012Q1

REPORT INFORMATION
  Report Type: 
  Country: None (occurrence: None)
  Receive Date: 20120124
  Receipt Date: 20120116
  Transmission Date: 20120608
  Serious: Yes (Hospitalization)
  Sender: FDA-Public Use
  Company Number: US-BAYER-201039667NA

PATIENT
  Age: 25 Year
  Sex: Female
  Weight: 70.295 kg

DRUGS (1)
  1. YASMIN [Suspect]
     Indication: CONTRACEPTION
     Route: 048
     Dates: start: 20060701, end: 20070801

REACTIONS (1)
  - PULMONARY EMBOLISM [None]
